FAERS Safety Report 24439420 (Version 2)
Quarter: 2025Q1

REPORT INFORMATION
  Report Type: Spontaneous
  Country: US (occurrence: US)
  Receive Date: 20241015
  Receipt Date: 20250110
  Transmission Date: 20250409
  Serious: No
  Sender: SUNOVION
  Company Number: US-SMPA-2024SPA003644AA

PATIENT

DRUGS (1)
  1. ORGOVYX [Suspect]
     Active Substance: RELUGOLIX
     Indication: Prostate cancer
     Route: 048

REACTIONS (5)
  - Conjunctival haemorrhage [Unknown]
  - Retching [Unknown]
  - Vomiting [Unknown]
  - Hot flush [Unknown]
  - Therapy interrupted [Unknown]
